FAERS Safety Report 10159260 (Version 5)
Quarter: 2014Q4

REPORT INFORMATION
  Report Type: Spontaneous
  Country: JP (occurrence: JP)
  Receive Date: 20140508
  Receipt Date: 20141007
  Transmission Date: 20150528
  Serious: Yes (Other)
  Sender: FDA-Public Use
  Company Number: JP-JNJFOC-20140501759

PATIENT
  Age: 59 Year
  Sex: Female
  Weight: 56 kg

DRUGS (14)
  1. PEGASYS [Suspect]
     Active Substance: PEGINTERFERON ALFA-2A
     Indication: CHRONIC HEPATITIS C
     Route: 058
     Dates: start: 20140220
  2. PURSENNID [Concomitant]
     Active Substance: SENNOSIDES A AND B
     Route: 048
     Dates: start: 20140303
  3. COPEGUS [Suspect]
     Active Substance: RIBAVIRIN
     Indication: CHRONIC HEPATITIS C
     Route: 048
     Dates: start: 20140220
  4. CELECOX [Concomitant]
     Active Substance: CELECOXIB
     Route: 048
     Dates: start: 20140221
  5. PRIMPERAN [Concomitant]
     Active Substance: METOCLOPRAMIDE HYDROCHLORIDE
     Route: 048
     Dates: start: 20140221
  6. SOVRIAD [Suspect]
     Active Substance: SIMEPREVIR
     Indication: CHRONIC HEPATITIS C
     Route: 048
     Dates: start: 20140220, end: 20140515
  7. DEXALTIN [Concomitant]
     Active Substance: DEXAMETHASONE
     Route: 061
  8. ACINON [Concomitant]
     Active Substance: NIZATIDINE
     Route: 048
     Dates: start: 20140417
  9. MAGMITT [Concomitant]
     Active Substance: MAGNESIUM OXIDE
     Route: 048
     Dates: start: 20140224
  10. MYONAL [Concomitant]
     Active Substance: EPERISONE HYDROCHLORIDE
     Route: 048
     Dates: start: 20140221, end: 20140311
  11. EPADEL [Concomitant]
     Active Substance: ICOSAPENT
     Route: 048
     Dates: start: 20140220
  12. ALLELOCK [Concomitant]
     Active Substance: OLOPATADINE HYDROCHLORIDE
     Route: 048
  13. TRAMCET [Concomitant]
     Active Substance: ACETAMINOPHEN\TRAMADOL
     Route: 048
     Dates: start: 20140221
  14. GOREISAN [Concomitant]
     Active Substance: HERBALS
     Route: 048
     Dates: start: 20140221

REACTIONS (9)
  - Pruritus [Recovering/Resolving]
  - Alopecia [Recovered/Resolved]
  - Platelet count decreased [Unknown]
  - Arthralgia [Recovered/Resolved]
  - Fatigue [Recovered/Resolved]
  - Hepatic steatosis [Unknown]
  - Liver disorder [Recovered/Resolved]
  - Glossodynia [Recovering/Resolving]
  - Stomatitis [Recovering/Resolving]

NARRATIVE: CASE EVENT DATE: 20140319
